FAERS Safety Report 8852812 (Version 2)
Quarter: 2012Q4

REPORT INFORMATION
  Report Type: Report from Study
  Country: ES (occurrence: ES)
  Receive Date: 20121022
  Receipt Date: 20121030
  Transmission Date: 20130627
  Serious: Yes (Other)
  Sender: FDA-Public Use
  Company Number: ES-JNJFOC-20121009561

PATIENT
  Age: 61 Year
  Sex: Female

DRUGS (8)
  1. REMICADE [Suspect]
     Indication: RHEUMATOID ARTHRITIS
     Route: 042
     Dates: start: 20020516, end: 20110503
  2. NSAIDS [Concomitant]
  3. FOLIC ACID [Concomitant]
  4. OMEPRAZOLE [Concomitant]
  5. CALCIUM AND VITAMIN D [Concomitant]
  6. ACENOCUMAROL [Concomitant]
  7. BISOPROLOL [Concomitant]
  8. TORASEMIDE [Concomitant]

REACTIONS (1)
  - Basal cell carcinoma [Unknown]
